FAERS Safety Report 5891133-1 (Version None)
Quarter: 2008Q3

REPORT INFORMATION
  Report Type: 
  Country: None (occurrence: None)
  Receive Date: 20080922
  Receipt Date: 20080801
  Transmission Date: 20090109
  Serious: No
  Sender: FDA-Public Use
  Company Number: US-BAYER-200830354NA

PATIENT
  Sex: Female

DRUGS (1)
  1. YASMIN [Suspect]
     Indication: IRRITABILITY
     Route: 048
     Dates: start: 20070101, end: 20070101

REACTIONS (2)
  - OFF LABEL USE [None]
  - UNEVALUABLE EVENT [None]
